FAERS Safety Report 6362354-9 (Version None)
Quarter: 2009Q3

REPORT INFORMATION
  Report Type: 
  Country: None (occurrence: None)
  Receive Date: 20090918
  Receipt Date: 20090618
  Transmission Date: 20100115
  Serious: Yes (Other)
  Sender: FDA-Public Use
  Company Number: US-ABBOTT-09P-163-0559590-00

PATIENT
  Sex: Male
  Weight: 47.67 kg

DRUGS (3)
  1. HUMIRA [Suspect]
     Indication: RHEUMATOID ARTHRITIS
     Dates: start: 20030615, end: 20060726
  2. HUMIRA [Suspect]
     Dates: start: 20070416, end: 20080123
  3. HUMIRA [Suspect]
     Dates: start: 20080123, end: 20080501

REACTIONS (1)
  - COCCIDIOIDOMYCOSIS [None]
